FAERS Safety Report 12208007 (Version 1)
Quarter: 2016Q1

REPORT INFORMATION
  Report Type: Spontaneous
  Country: CH (occurrence: CH)
  Receive Date: 20160324
  Receipt Date: 20160324
  Transmission Date: 20160526
  Serious: Yes (Hospitalization)
  Sender: FDA-Public Use
  Company Number: CH-JNJFOC-20160315116

PATIENT
  Age: 74 Year
  Sex: Male
  Weight: 85 kg

DRUGS (17)
  1. MOMETASON [Concomitant]
     Active Substance: MOMETASONE FUROATE
     Route: 061
  2. ECOFENAC [Concomitant]
     Active Substance: DICLOFENAC SODIUM
     Route: 065
     Dates: start: 201602
  3. CONDROSULF [Concomitant]
     Active Substance: CHONDROITIN SULFATE (CHICKEN)
     Route: 048
  4. REMEDERM [Concomitant]
     Route: 061
     Dates: end: 201602
  5. RANITIDIN-MEPHA [Concomitant]
     Route: 048
  6. EXCIPIAL U LIPOLOT [Concomitant]
     Active Substance: UREA
     Route: 061
  7. ATORVASTATIN [Concomitant]
     Active Substance: ATORVASTATIN
     Route: 048
  8. FINASTERID [Concomitant]
     Route: 048
  9. TEMESTA [Concomitant]
     Active Substance: LORAZEPAM
     Route: 065
     Dates: end: 201602
  10. CALEYX [Suspect]
     Active Substance: DOXORUBICIN HYDROCHLORIDE
     Indication: MYCOSIS FUNGOIDES STAGE III
     Route: 042
     Dates: start: 20151127
  11. ATARAX [Concomitant]
     Active Substance: HYDROXYZINE\HYDROXYZINE HYDROCHLORIDE
     Indication: MYCOSIS FUNGOIDES
     Route: 048
     Dates: end: 201602
  12. DICLOFENAC SODIUM. [Concomitant]
     Active Substance: DICLOFENAC SODIUM
     Route: 048
     Dates: end: 201602
  13. DYMISTA [Concomitant]
     Active Substance: AZELASTINE HYDROCHLORIDE\FLUTICASONE PROPIONATE
     Route: 045
     Dates: end: 201602
  14. CALEYX [Suspect]
     Active Substance: DOXORUBICIN HYDROCHLORIDE
     Indication: MYCOSIS FUNGOIDES STAGE III
     Route: 042
     Dates: start: 20160105
  15. CALEYX [Suspect]
     Active Substance: DOXORUBICIN HYDROCHLORIDE
     Indication: MYCOSIS FUNGOIDES STAGE III
     Route: 042
     Dates: start: 20151216
  16. PANTOPRAZOL [Concomitant]
     Active Substance: PANTOPRAZOLE SODIUM
     Route: 048
  17. AMPHO-MORONAL [Concomitant]
     Active Substance: AMPHOTERICIN B
     Route: 002
     Dates: end: 201602

REACTIONS (7)
  - Mucosal dryness [Unknown]
  - Nail disorder [Unknown]
  - Product use issue [Unknown]
  - Palmar-plantar erythrodysaesthesia syndrome [Recovering/Resolving]
  - Conjunctivitis [Unknown]
  - Eczema [Recovering/Resolving]
  - Off label use [Unknown]

NARRATIVE: CASE EVENT DATE: 20151127
